FAERS Safety Report 19684468 (Version 1)
Quarter: 2021Q3

REPORT INFORMATION
  Report Type: Spontaneous
  Country: US (occurrence: US)
  Receive Date: 20210810
  Receipt Date: 20210810
  Transmission Date: 20211014
  Serious: Yes (Death)
  Sender: FDA-Public Use
  Company Number: None

PATIENT
  Age: 24 Year
  Sex: Female

DRUGS (2)
  1. MISOPROSTOL. [Suspect]
     Active Substance: MISOPROSTOL
     Indication: ABORTION INDUCED
     Dosage: ?          OTHER FREQUENCY:ONE TIME;?
     Route: 048
     Dates: start: 20210618, end: 20210619
  2. MIFEPRISTONE [Suspect]
     Active Substance: MIFEPRISTONE
     Indication: ABORTION INDUCED
     Dosage: ?          OTHER FREQUENCY:ONE TIME;?
     Route: 048
     Dates: start: 20210618, end: 20210618

REACTIONS (5)
  - Exposure during pregnancy [None]
  - Clostridial infection [None]
  - Cardiac arrest [None]
  - Hypotension [None]
  - Toxic shock syndrome [None]

NARRATIVE: CASE EVENT DATE: 20210622
